FAERS Safety Report 5536104-X (Version None)
Quarter: 2007Q4

REPORT INFORMATION
  Report Type: 
  Country: None (occurrence: None)
  Receive Date: 20071120
  Receipt Date: 20070802
  Transmission Date: 20080405
  Serious: No
  Sender: FDA-Public Use
  Company Number: WAES 0708USA00746

PATIENT
  Age: 59 Year
  Sex: Female

DRUGS (6)
  1. JANUVIA [Suspect]
     Indication: DIABETES MELLITUS
     Dosage: 25 MG DAILY PO, 50 MG DAILY PO
     Route: 048
     Dates: start: 20070601, end: 20070801
  2. JANUVIA [Suspect]
     Indication: DIABETES MELLITUS
     Dosage: 25 MG DAILY PO, 50 MG DAILY PO
     Route: 048
     Dates: start: 20070802
  3. DITROPAN XL [Concomitant]
  4. EVISTA [Concomitant]
  5. GLIPIZIDE [Concomitant]
  6. LISINOPRIL [Concomitant]

REACTIONS (1)
  - DIZZINESS [None]
